FAERS Safety Report 4661237-X (Version None)
Quarter: 2005Q2

REPORT INFORMATION
  Report Type: 
  Country: None (occurrence: None)
  Receive Date: 20050420
  Receipt Date: 20041122
  Transmission Date: 20051028
  Serious: Yes (Other)
  Sender: FDA-Public Use
  Company Number: 200414463US

PATIENT

DRUGS (1)
  1. ALLEGRA [Suspect]

REACTIONS (1)
  - OVERDOSE [None]
